FAERS Safety Report 7222764-4 (Version None)
Quarter: 2011Q1

REPORT INFORMATION
  Report Type: 
  Country: None (occurrence: None)
  Receive Date: 20110106
  Receipt Date: 20110106
  Transmission Date: 20110831
  Serious: Yes (Hospitalization)
  Sender: FDA-Public Use
  Company Number: None

PATIENT
  Age: 51 Year
  Sex: Male

DRUGS (12)
  1. COUMADIN [Concomitant]
  2. POTASSIUM CHLORIDE [Concomitant]
  3. ADVAIR [Concomitant]
  4. ASPIRIN [Concomitant]
  5. TIKOSYN [Suspect]
     Indication: ISCHAEMIC CARDIOMYOPATHY
     Dosage: 500 MCG BID PO
     Route: 048
  6. NITROGLYCERIN [Concomitant]
  7. PRAVACHOL [Concomitant]
  8. LISINOPRIL [Concomitant]
  9. TRIAMCINOLONE [Concomitant]
  10. LASIX [Concomitant]
  11. COMBIVENT [Concomitant]
  12. VIAGRA [Concomitant]

REACTIONS (3)
  - HYPOKALAEMIA [None]
  - HYPOMAGNESAEMIA [None]
  - ELECTROCARDIOGRAM QT PROLONGED [None]
